FAERS Safety Report 7039381-1 (Version None)
Quarter: 2010Q4

REPORT INFORMATION
  Report Type: 
  Country: None (occurrence: None)
  Receive Date: 20101012
  Receipt Date: 20101005
  Transmission Date: 20110411
  Serious: Yes (Life-Threatening, Hospitalization)
  Sender: FDA-Public Use
  Company Number: US-ROXANE LABORATORIES, INC.-2010-RO-01319RO

PATIENT
  Age: 39 Year
  Sex: Female

DRUGS (15)
  1. LITHIUM CARBONATE [Suspect]
     Indication: BIPOLAR I DISORDER
     Dosage: 600 MG
  2. DIAZEPAM [Suspect]
     Indication: AGITATION
  3. DIAZEPAM [Suspect]
     Route: 042
  4. CLOZAPINE [Suspect]
     Indication: BIPOLAR I DISORDER
     Dosage: 200 MG
  5. VALPROIC ACID [Suspect]
     Indication: BIPOLAR I DISORDER
     Dosage: 700 MG
  6. PIPAMPERONE [Suspect]
     Indication: BIPOLAR I DISORDER
     Dosage: 80 MG
  7. HALOPERIDOL [Suspect]
     Indication: AGITATION
     Route: 048
  8. HALOPERIDOL [Suspect]
     Route: 030
  9. ACETAMINOPHEN [Suspect]
     Route: 048
  10. BROMOCRIPTINE [Suspect]
     Dosage: 15 MG
     Route: 048
  11. APOMORPHINE [Suspect]
     Dosage: 24 MG
     Route: 058
  12. APOMORPHINE [Suspect]
     Dosage: 15 MG
  13. CARBIDOPA + LEVODOPA [Suspect]
     Indication: MUSCULOSKELETAL STIFFNESS
  14. CARBIDOPA + LEVODOPA [Suspect]
     Indication: TREMOR
  15. LEVOTHYROXINE SODIUM [Suspect]
     Indication: AUTOIMMUNE THYROIDITIS
     Dosage: 75 MCG

REACTIONS (2)
  - CATATONIA [None]
  - NEUROLEPTIC MALIGNANT SYNDROME [None]
